FAERS Safety Report 14663418 (Version 1)
Quarter: 2018Q1

REPORT INFORMATION
  Report Type: Spontaneous
  Country: US (occurrence: US)
  Receive Date: 20180319
  Receipt Date: 20180319
  Transmission Date: 20180509
  Serious: No
  Sender: FDA-Public Use
  Company Number: None

PATIENT
  Sex: Male

DRUGS (1)
  1. IBRANCE [Suspect]
     Active Substance: PALBOCICLIB
     Indication: SOFT TISSUE SARCOMA
     Dosage: FREQUENCY: DAILY X 21 DAYS, THEN 7 DAYS OFF
     Route: 048
     Dates: start: 20171122

REACTIONS (2)
  - White blood cell count decreased [None]
  - Red blood cell count decreased [None]
